FAERS Safety Report 6507875-0 (Version None)
Quarter: 2009Q4

REPORT INFORMATION
  Report Type: 
  Country: None (occurrence: None)
  Receive Date: 20091221
  Receipt Date: 20091217
  Transmission Date: 20100525
  Serious: Yes (Hospitalization)
  Sender: FDA-Public Use
  Company Number: A0835635A

PATIENT
  Sex: Female

DRUGS (4)
  1. ADVAIR DISKUS 100/50 [Suspect]
     Indication: CHRONIC OBSTRUCTIVE PULMONARY DISEASE
     Dosage: 2PUFF TWICE PER DAY
     Route: 055
  2. INHALER [Concomitant]
     Route: 055
  3. UNSPECIFIED INHALER [Concomitant]
     Route: 055
  4. ALBUTEROL WITH NEBULIZER [Concomitant]

REACTIONS (7)
  - CARDIAC DISORDER [None]
  - CHEST DISCOMFORT [None]
  - INHALATION THERAPY [None]
  - LUNG INFECTION [None]
  - PNEUMONIA [None]
  - RESPIRATORY ARREST [None]
  - RESPIRATORY DISORDER [None]
